FAERS Safety Report 7633100-3 (Version None)
Quarter: 2011Q3

REPORT INFORMATION
  Report Type: 
  Country: None (occurrence: None)
  Receive Date: 20110725
  Receipt Date: 20110714
  Transmission Date: 20111222
  Serious: Yes (Other)
  Sender: FDA-Public Use
  Company Number: US-ROCHE-733145

PATIENT
  Sex: Male
  Weight: 74.8 kg

DRUGS (1)
  1. ACCUTANE [Suspect]
     Route: 048
     Dates: start: 19920606, end: 19921201

REACTIONS (8)
  - COLONIC POLYP [None]
  - PROCTITIS ULCERATIVE [None]
  - ANXIETY [None]
  - IRRITABLE BOWEL SYNDROME [None]
  - ACNE [None]
  - COLITIS ULCERATIVE [None]
  - SMALL INTESTINAL OBSTRUCTION [None]
  - INFLAMMATORY BOWEL DISEASE [None]
